FAERS Safety Report 9277406 (Version 1)
Quarter: 2013Q2

REPORT INFORMATION
  Report Type: Spontaneous
  Country: US (occurrence: None)
  Receive Date: 20130503
  Receipt Date: 20130503
  Transmission Date: 20140414
  Serious: Yes (Other)
  Sender: FDA-Public Use
  Company Number: None

PATIENT
  Age: 64 Year
  Sex: Female
  Weight: 58.06 kg

DRUGS (1)
  1. SYNTHROID [Suspect]
     Indication: HYPOTHYROIDISM
     Dosage: 10 A WEEK
     Route: 048
     Dates: start: 20130114, end: 20130423

REACTIONS (9)
  - Muscle spasms [None]
  - Fatigue [None]
  - Anxiety [None]
  - Headache [None]
  - Malaise [None]
  - Product quality issue [None]
  - Blood thyroid stimulating hormone increased [None]
  - Blood thyroid stimulating hormone decreased [None]
  - Product substitution issue [None]
